FAERS Safety Report 13778129 (Version 1)
Quarter: 2017Q3

REPORT INFORMATION
  Report Type: Spontaneous
  Country: GB (occurrence: GB)
  Receive Date: 20170721
  Receipt Date: 20170721
  Transmission Date: 20171127
  Serious: Yes (Disabling)
  Sender: FDA-Public Use
  Company Number: GB-PFIZER INC-2017313457

PATIENT
  Age: 45 Year
  Sex: Male
  Weight: 92.98 kg

DRUGS (2)
  1. NEURONTIN [Suspect]
     Active Substance: GABAPENTIN
     Indication: BACK PAIN
     Dosage: 300 MG, 3X/DAY (BUILDING UP TO 1800 MG A DAY)
     Route: 048
     Dates: start: 20170401, end: 20170709
  2. AMITRIPTYLINE [Concomitant]
     Active Substance: AMITRIPTYLINE
     Dosage: UNK

REACTIONS (7)
  - Dizziness [Not Recovered/Not Resolved]
  - Aphasia [Unknown]
  - Headache [Not Recovered/Not Resolved]
  - Mental impairment [Unknown]
  - Confusional state [Recovering/Resolving]
  - Speech disorder [Unknown]
  - Hypertension [Not Recovered/Not Resolved]

NARRATIVE: CASE EVENT DATE: 20170629
